FAERS Safety Report 18549972 (Version 1)
Quarter: 2020Q4

REPORT INFORMATION
  Report Type: Spontaneous
  Country: US (occurrence: US)
  Receive Date: 20201126
  Receipt Date: 20201126
  Transmission Date: 20210114
  Serious: Yes (Other)
  Sender: FDA-Public Use
  Company Number: US-COOPERSURGICAL, INC.-US-2020CPS002937

PATIENT
  Age: 24 Year
  Sex: Female
  Weight: 60.6 kg

DRUGS (1)
  1. PARAGARD T 380A [Suspect]
     Active Substance: COPPER
     Indication: CONTRACEPTION
     Dosage: UNK
     Route: 015
     Dates: start: 20200513, end: 20200624

REACTIONS (6)
  - Vomiting [Unknown]
  - Headache [Unknown]
  - Ovarian cyst [Recovering/Resolving]
  - Nausea [Unknown]
  - Ovarian abscess [Recovering/Resolving]
  - Pelvic inflammatory disease [Unknown]

NARRATIVE: CASE EVENT DATE: 2020
